FAERS Safety Report 23035906 (Version 1)
Quarter: 2023Q4

REPORT INFORMATION
  Report Type: Spontaneous
  Country: GB (occurrence: GB)
  Receive Date: 20231006
  Receipt Date: 20231006
  Transmission Date: 20240110
  Serious: Yes (Hospitalization, Other)
  Sender: FDA-Public Use
  Company Number: None

PATIENT
  Age: 73 Year
  Sex: Male

DRUGS (9)
  1. CLOPIDOGREL [Suspect]
     Active Substance: CLOPIDOGREL BISULFATE
     Indication: Product used for unknown indication
     Dosage: HELD TEMPORARILY THEN RESUMED
  2. DOSULEPIN HYDROCHLORIDE [Concomitant]
     Active Substance: DOTHIEPIN HYDROCHLORIDE
     Dosage: AT NIGHT
  3. ATORVASTATIN [Concomitant]
     Active Substance: ATORVASTATIN
     Dosage: AT NIGHT
  4. LACTULOSE [Concomitant]
     Active Substance: LACTULOSE
     Dosage: 3.1-3.7G/5ML ?AT NIGHT
  5. QUININE SULFATE [Concomitant]
     Active Substance: QUININE SULFATE
     Dosage: AT NIGHT
  6. FERROUS SULFATE [Concomitant]
     Active Substance: FERROUS SULFATE
  7. THIAMINE [Concomitant]
     Active Substance: THIAMINE
  8. LANSOPRAZOLE [Concomitant]
     Active Substance: LANSOPRAZOLE
  9. DOSULEPIN HYDROCHLORIDE [Concomitant]
     Active Substance: DOTHIEPIN HYDROCHLORIDE
     Dosage: AT NIGHT

REACTIONS (1)
  - Haematemesis [Unknown]

NARRATIVE: CASE EVENT DATE: 20230120
